FAERS Safety Report 5160767-4 (Version None)
Quarter: 2006Q4

REPORT INFORMATION
  Report Type: 
  Country: None (occurrence: None)
  Receive Date: 20060919
  Receipt Date: 20060613
  Transmission Date: 20070319
  Serious: No
  Sender: FDA-Public Use
  Company Number: 2006US001331

PATIENT
  Sex: Female

DRUGS (7)
  1. VESICARE [Suspect]
     Indication: POLLAKIURIA
     Dosage: 5 MG ORAL
     Route: 048
  2. VESICARE [Suspect]
  3. VESICARE [Suspect]
  4. VESICARE [Suspect]
  5. SYNTHROID [Concomitant]
  6. KLONOPIN [Concomitant]
  7. WELLBUTRIN [Concomitant]

REACTIONS (2)
  - DRUG INEFFECTIVE [None]
  - POOR QUALITY DRUG ADMINISTERED [None]
